FAERS Safety Report 11568153 (Version 1)
Quarter: 2015Q3

REPORT INFORMATION
  Report Type: Spontaneous
  Country: DE (occurrence: DE)
  Receive Date: 20150929
  Receipt Date: 20150929
  Transmission Date: 20151125
  Serious: Yes (Other)
  Sender: FDA-Public Use
  Company Number: DE-ACCORD-033869

PATIENT
  Age: 70 Year
  Sex: Female

DRUGS (4)
  1. HYDROXYCHLOROQUINE [Concomitant]
     Active Substance: HYDROXYCHLOROQUINE
  2. METHOTREXATE [Suspect]
     Active Substance: METHOTREXATE
     Indication: PRODUCT USED FOR UNKNOWN INDICATION
     Dosage: 20 MG/WEEK ,?TOTAL DURATION OF TREATMENT: 6 MONTHS DOSE INCREASED FROM 15 MG/WEEK 3 MONTHS PRIOR
  3. FOLIC ACID. [Concomitant]
     Active Substance: FOLIC ACID
  4. ACETYLSALICYLIC ACID [Concomitant]
     Active Substance: ASPIRIN

REACTIONS (2)
  - Skin ulcer [Recovered/Resolved]
  - Skin erosion [Recovered/Resolved]
